FAERS Safety Report 5118016-9 (Version None)
Quarter: 2006Q3

REPORT INFORMATION
  Report Type: 
  Country: None (occurrence: None)
  Receive Date: 20060929
  Receipt Date: 20060918
  Transmission Date: 20061208
  Serious: Yes (Hospitalization)
  Sender: FDA-Public Use
  Company Number: US-JNJFOC-20060904645

PATIENT
  Age: 78 Year
  Sex: Male
  Weight: 67.13 kg

DRUGS (6)
  1. TOPAMAX [Suspect]
     Indication: TENSION HEADACHE
     Route: 048
  2. TOPROL-XL [Suspect]
     Indication: HEART RATE INCREASED
  3. PREVACID [Concomitant]
     Indication: GASTROOESOPHAGEAL REFLUX DISEASE
  4. ALTACE [Concomitant]
     Indication: HYPERTENSION
  5. ASPIRIN [Concomitant]
     Indication: ANTICOAGULANT THERAPY
  6. SINEMET [Concomitant]
     Indication: RESTLESS LEGS SYNDROME

REACTIONS (13)
  - BALANCE DISORDER [None]
  - CHEST DISCOMFORT [None]
  - CONFUSIONAL STATE [None]
  - COORDINATION ABNORMAL [None]
  - CORONARY ARTERY STENOSIS [None]
  - DISTURBANCE IN ATTENTION [None]
  - DRUG ADMINISTRATION ERROR [None]
  - DRUG INEFFECTIVE [None]
  - DYSPNOEA [None]
  - HEART RATE DECREASED [None]
  - HEART RATE INCREASED [None]
  - HEART RATE IRREGULAR [None]
  - PARAESTHESIA [None]
